FAERS Safety Report 5580979-5 (Version None)
Quarter: 2007Q4

REPORT INFORMATION
  Report Type: 
  Country: None (occurrence: None)
  Receive Date: 20071130
  Receipt Date: 20070801
  Transmission Date: 20080405
  Serious: No
  Sender: FDA-Public Use
  Company Number: US200707002978

PATIENT
  Age: 58 Year
  Sex: Female
  Weight: 136.1 kg

DRUGS (4)
  1. BYETTA [Suspect]
     Indication: TYPE 2 DIABETES MELLITUS
     Dosage: 5 UG, 2/D, SUBCUTANEOUS
     Route: 058
     Dates: start: 20070601
  2. TRAZODONE HCL [Concomitant]
  3. VYTORIN [Concomitant]
  4. NORVASC [Concomitant]

REACTIONS (6)
  - DECREASED APPETITE [None]
  - DRUG INEFFECTIVE [None]
  - FATIGUE [None]
  - FEELING ABNORMAL [None]
  - LIMB DISCOMFORT [None]
  - PLANTAR FASCIITIS [None]
